FAERS Safety Report 4758185-3 (Version None)
Quarter: 2005Q3

REPORT INFORMATION
  Report Type: 
  Country: None (occurrence: None)
  Receive Date: 20050831
  Receipt Date: 20050414
  Transmission Date: 20060218
  Serious: Yes (Death, Disabling)
  Sender: FDA-Public Use
  Company Number: US-MERCK-0504USA02985

PATIENT
  Age: 65 Year
  Sex: Female
  Weight: 81 kg

DRUGS (12)
  1. VIOXX [Suspect]
     Indication: ARTHRALGIA
     Route: 048
     Dates: start: 20010705
  2. DIOVAN [Concomitant]
     Indication: HYPERTENSION
     Route: 065
     Dates: start: 20010130, end: 20040301
  3. NORVASC [Concomitant]
     Indication: CHEST PAIN
     Route: 065
     Dates: start: 20010514, end: 20040301
  4. HYDROCHLOROTHIAZIDE [Concomitant]
     Indication: HYPERTENSION
     Route: 065
     Dates: start: 20000103, end: 20040401
  5. PRAVACHOL [Concomitant]
     Indication: BLOOD CHOLESTEROL INCREASED
     Route: 065
     Dates: start: 20000827, end: 20040401
  6. CORTEF [Concomitant]
     Indication: PAIN
     Route: 065
     Dates: start: 20000124, end: 20040301
  7. CORTEF [Concomitant]
     Indication: ARTHRITIS
     Route: 065
     Dates: start: 20000124, end: 20040301
  8. SALSALATE [Concomitant]
     Indication: PAIN
     Route: 065
     Dates: start: 20000117, end: 20040401
  9. SALSALATE [Concomitant]
     Indication: ARTHRITIS
     Route: 065
     Dates: start: 20000117, end: 20040401
  10. VICODIN [Concomitant]
     Indication: PAIN
     Route: 065
     Dates: start: 20000604, end: 20031201
  11. VICODIN [Concomitant]
     Indication: ARTHRITIS
     Route: 065
     Dates: start: 20000604, end: 20031201
  12. EVISTA [Concomitant]
     Indication: HORMONE REPLACEMENT THERAPY
     Route: 065
     Dates: start: 20000611, end: 20040401

REACTIONS (4)
  - ADVERSE EVENT [None]
  - BACK PAIN [None]
  - FALL [None]
  - MYOCARDIAL INFARCTION [None]
